FAERS Safety Report 18440415 (Version 1)
Quarter: 2020Q4

REPORT INFORMATION
  Report Type: Spontaneous
  Country: US (occurrence: US)
  Receive Date: 20201029
  Receipt Date: 20201029
  Transmission Date: 20210114
  Serious: Yes (Hospitalization)
  Sender: FDA-Public Use
  Company Number: None

PATIENT
  Age: 66 Year
  Sex: Female

DRUGS (1)
  1. REVLIMID [Suspect]
     Active Substance: LENALIDOMIDE
     Indication: PLASMA CELL MYELOMA
     Route: 048
     Dates: start: 20170620

REACTIONS (8)
  - Dizziness [None]
  - Fall [None]
  - Odynophagia [None]
  - Oropharyngeal pain [None]
  - Pancytopenia [None]
  - Asthenia [None]
  - Neutropenia [None]
  - Skin injury [None]

NARRATIVE: CASE EVENT DATE: 20200819
